FAERS Safety Report 8942236 (Version 1)
Quarter: 2012Q4

REPORT INFORMATION
  Report Type: Spontaneous
  Country: US (occurrence: None)
  Receive Date: 20121129
  Receipt Date: 20121129
  Transmission Date: 20130627
  Serious: No
  Sender: FDA-Public Use
  Company Number: None

PATIENT
  Age: 52 Year
  Sex: Female

DRUGS (1)
  1. ESCITALOPRAM 20MG [Suspect]
     Indication: DEPRESSION
     Dosage: 20 mg daily oral
     Route: 048
     Dates: start: 20120831, end: 20121023

REACTIONS (5)
  - Weight increased [None]
  - Asthenia [None]
  - Depression [None]
  - Alopecia [None]
  - Product substitution issue [None]
